FAERS Safety Report 19271178 (Version 1)
Quarter: 2021Q2

REPORT INFORMATION
  Report Type: Spontaneous
  Country: RU (occurrence: RU)
  Receive Date: 20210518
  Receipt Date: 20210518
  Transmission Date: 20210717
  Serious: Yes (Death, Other)
  Sender: FDA-Public Use
  Company Number: RU-ASTRAZENECA-2021A438525

PATIENT
  Sex: Male

DRUGS (1)
  1. IMFINZI [Suspect]
     Active Substance: DURVALUMAB
     Indication: NON-SMALL CELL LUNG CANCER
     Route: 042
     Dates: start: 20210407, end: 20210421

REACTIONS (3)
  - Body temperature increased [Unknown]
  - Condition aggravated [Unknown]
  - Pneumonia bacterial [Fatal]

NARRATIVE: CASE EVENT DATE: 20210426
